FAERS Safety Report 8589816-8 (Version None)
Quarter: 2012Q3

REPORT INFORMATION
  Report Type: 
  Country: None (occurrence: None)
  Receive Date: 20120813
  Receipt Date: 20120112
  Transmission Date: 20120928
  Serious: Yes (Death)
  Sender: FDA-Public Use
  Company Number: US-ROCHE-1098230

PATIENT

DRUGS (3)
  1. PULMOZYME [Suspect]
     Indication: CYSTIC FIBROSIS
  2. PULMOZYME [Suspect]
     Indication: CYSTIC FIBROSIS PANCREATIC
  3. PULMOZYME [Suspect]

REACTIONS (1)
  - DEATH [None]
